FAERS Safety Report 12971411 (Version 1)
Quarter: 2016Q4

REPORT INFORMATION
  Report Type: Spontaneous
  Country: US (occurrence: US)
  Receive Date: 20161123
  Receipt Date: 20161123
  Transmission Date: 20170207
  Serious: No
  Sender: FDA-Public Use
  Company Number: US-JAZZ-2016-US-019954

PATIENT
  Sex: Male

DRUGS (14)
  1. XYREM [Suspect]
     Active Substance: SODIUM OXYBATE
     Indication: RESTLESS LEGS SYNDROME
     Dosage: 2.5 G, BID
     Route: 048
     Dates: start: 200410, end: 2004
  2. XYREM [Suspect]
     Active Substance: SODIUM OXYBATE
     Dosage: DOSE ADJUSTMENT
     Route: 048
     Dates: start: 2004, end: 2008
  3. VITAMIN D [Concomitant]
     Active Substance: CHOLECALCIFEROL
  4. OXYCODONE HYDROCHLORIDE. [Concomitant]
     Active Substance: OXYCODONE HYDROCHLORIDE
  5. XYREM [Suspect]
     Active Substance: SODIUM OXYBATE
     Dosage: 4.5 G, BID
     Route: 048
     Dates: start: 2008
  6. LOPERAMIDE [Concomitant]
     Active Substance: LOPERAMIDE
  7. TESTOSTERONE. [Concomitant]
     Active Substance: TESTOSTERONE
  8. ALPRAZOLAM. [Concomitant]
     Active Substance: ALPRAZOLAM
  9. LUNESTA [Concomitant]
     Active Substance: ESZOPICLONE
  10. NORDITROPIN [Concomitant]
     Active Substance: SOMATROPIN
  11. TAMSULOSIN HCL [Concomitant]
     Active Substance: TAMSULOSIN
  12. ZOLPIDEM TARTATE [Concomitant]
     Active Substance: ZOLPIDEM TARTRATE
  13. CIALIS [Concomitant]
     Active Substance: TADALAFIL
  14. VALACYCLOVIR HCL [Concomitant]
     Active Substance: VALACYCLOVIR HYDROCHLORIDE

REACTIONS (1)
  - Tremor [Unknown]
